FAERS Safety Report 6982118-2 (Version None)
Quarter: 2010Q3

REPORT INFORMATION
  Report Type: 
  Country: None (occurrence: None)
  Receive Date: 20100914
  Receipt Date: 20091204
  Transmission Date: 20110219
  Serious: No
  Sender: FDA-Public Use
  Company Number: US-PFIZER INC-2009307213

PATIENT
  Sex: Female
  Weight: 68.027 kg

DRUGS (5)
  1. LYRICA [Suspect]
     Dosage: 75 MG, 2X/DAY
     Dates: start: 20090101
  2. HYZAAR [Concomitant]
     Dosage: 100/25 MG, UNK
  3. ALISKIREN [Concomitant]
     Dosage: 300 MG, UNK
  4. PROZAC [Concomitant]
     Dosage: 80 MG, UNK
  5. LAMICTAL [Concomitant]
     Dosage: 50 MG, UNK

REACTIONS (1)
  - WEIGHT INCREASED [None]
